FAERS Safety Report 24980048 (Version 1)
Quarter: 2025Q1

REPORT INFORMATION
  Report Type: Spontaneous
  Country: US (occurrence: US)
  Receive Date: 20250218
  Receipt Date: 20250218
  Transmission Date: 20250409
  Serious: Yes (Hospitalization, Other)
  Sender: SUNOVION
  Company Number: US-SMPA-2025SPA001687

PATIENT

DRUGS (6)
  1. ORGOVYX [Suspect]
     Active Substance: RELUGOLIX
     Indication: Prostate cancer
     Dosage: 120 MG, QD
     Route: 048
  2. ELIQUIS [Concomitant]
     Active Substance: APIXABAN
     Dosage: 10 MG, BID
     Route: 065
  3. ATORVASTATIN [Concomitant]
     Active Substance: ATORVASTATIN
     Indication: Blood cholesterol
     Dosage: 80 MG, QD
     Route: 065
  4. COZAAR [Concomitant]
     Active Substance: LOSARTAN POTASSIUM
     Dosage: 12.5 MG, QD
     Route: 065
  5. METOPROLOL [Concomitant]
     Active Substance: METOPROLOL
     Indication: Blood pressure measurement
     Dosage: 25 MG, QD
     Route: 065
  6. GABAPENTIN [Concomitant]
     Active Substance: GABAPENTIN
     Indication: Urinary tract disorder
     Dosage: 800 MG, QD
     Route: 065

REACTIONS (1)
  - Neoplasm [Unknown]
